FAERS Safety Report 10220041 (Version 1)
Quarter: 2014Q2

REPORT INFORMATION
  Report Type: Spontaneous
  Country: IT (occurrence: IT)
  Receive Date: 20140605
  Receipt Date: 20140605
  Transmission Date: 20141212
  Serious: Yes (Hospitalization, Congenital Anomaly)
  Sender: FDA-Public Use
  Company Number: PHHY2014IT066221

PATIENT
  Sex: Male

DRUGS (2)
  1. DIGOXIN [Suspect]
     Route: 064
  2. FLECAINIDE [Suspect]
     Route: 064

REACTIONS (5)
  - Cardiac aneurysm [Unknown]
  - Atrial flutter [Unknown]
  - Systolic dysfunction [Unknown]
  - Mitral valve incompetence [Unknown]
  - Foetal exposure during pregnancy [Unknown]
